FAERS Safety Report 4570117-X (Version None)
Quarter: 2005Q1

REPORT INFORMATION
  Report Type: 
  Country: None (occurrence: None)
  Receive Date: 20050131
  Receipt Date: 20050119
  Transmission Date: 20050727
  Serious: Yes (Other)
  Sender: FDA-Public Use
  Company Number: 2005016168

PATIENT
  Sex: Female
  Weight: 59.8748 kg

DRUGS (3)
  1. VISINE II EYE DROPS [Suspect]
     Indication: OCULAR HYPERAEMIA
     Dosage: 3-4 TIMES A WEEK, OPHTHALMIC
     Route: 047
  2. ANALGESICS (ANALGESICS) [Concomitant]
  3. GABAPENTIN [Concomitant]

REACTIONS (1)
  - SPINAL CORD OPERATION [None]
